FAERS Safety Report 20309607 (Version 4)
Quarter: 2022Q1

REPORT INFORMATION
  Report Type: Report from Study
  Country: CH (occurrence: CH)
  Receive Date: 20220107
  Receipt Date: 20220224
  Transmission Date: 20220423
  Serious: Yes (Other)
  Sender: FDA-Public Use
  Company Number: CH-ABBVIE-21K-151-4217290-00

PATIENT
  Age: 64 Year
  Sex: Female

DRUGS (9)
  1. CARBIDOPA\LEVODOPA [Suspect]
     Active Substance: CARBIDOPA\LEVODOPA
     Indication: Parkinson^s disease
     Dosage: 20 MG/ML 5 MG/ML
     Route: 050
     Dates: start: 20210914, end: 20210915
  2. CARBIDOPA\LEVODOPA [Suspect]
     Active Substance: CARBIDOPA\LEVODOPA
     Dosage: MD: 5 ML, CRD: 3.1 ML/H, CRN: 2 ML/H, ED: 2 ML
     Route: 050
     Dates: start: 20210915, end: 20210917
  3. CARBIDOPA\LEVODOPA [Suspect]
     Active Substance: CARBIDOPA\LEVODOPA
     Dosage: MD: 3 ML, CRD: 2.6 ML/H, CRN: 2 ML/H, ED: 1 ML
     Route: 050
     Dates: start: 20210917, end: 20210921
  4. CARBIDOPA\LEVODOPA [Suspect]
     Active Substance: CARBIDOPA\LEVODOPA
     Dosage: MD: 2 ML, CRD: 2.6 ML/H, CRN: 2 ML/H, ED: 1.0 ML
     Route: 050
     Dates: start: 20210921, end: 20210923
  5. CARBIDOPA\LEVODOPA [Suspect]
     Active Substance: CARBIDOPA\LEVODOPA
     Dosage: MD: 2 ML, CRD: 2.8 ML/H, CRN: 2 ML/H, ED: 1.0 ML
     Route: 050
     Dates: start: 20210923, end: 20211227
  6. CARBIDOPA\LEVODOPA [Suspect]
     Active Substance: CARBIDOPA\LEVODOPA
     Dosage: MD: 2 ML, CRD: 3.2 ML/H, CRN: 2 ML/H, ED: 2.0 ML
     Route: 050
     Dates: start: 20210927, end: 20211022
  7. CARBIDOPA\LEVODOPA [Suspect]
     Active Substance: CARBIDOPA\LEVODOPA
     Dosage: MD: 2 ML, CRD: 3.2 ML/H, CRN: 2.2 ML/H, ED: 2.0 ML, AD: 3.4 ML
     Route: 050
     Dates: start: 20211022, end: 20220214
  8. CARBIDOPA\LEVODOPA [Suspect]
     Active Substance: CARBIDOPA\LEVODOPA
     Dosage: MD: 2 ML, CRD: 3.8 ML/H, CRN: 2.2 ML/H, ED: 2.0 ML
     Route: 050
     Dates: start: 20220214
  9. BENSERAZIDE HYDROCHLORIDE\LEVODOPA [Concomitant]
     Active Substance: BENSERAZIDE HYDROCHLORIDE\LEVODOPA
     Indication: Product used for unknown indication
     Route: 048

REACTIONS (13)
  - Seizure [Recovering/Resolving]
  - Self-consciousness [Unknown]
  - Muscle twitching [Unknown]
  - Tremor [Unknown]
  - Malaise [Unknown]
  - Abdominal pain upper [Unknown]
  - Abdominal pain [Unknown]
  - Vomiting [Unknown]
  - Anxiety [Unknown]
  - Therapeutic product effect decreased [Unknown]
  - Device kink [Unknown]
  - Device leakage [Unknown]
  - Device dislocation [Recovered/Resolved]

NARRATIVE: CASE EVENT DATE: 20211201
